FAERS Safety Report 6902137-1 (Version None)
Quarter: 2010Q3

REPORT INFORMATION
  Report Type: 
  Country: None (occurrence: None)
  Receive Date: 20100802
  Receipt Date: 20100802
  Transmission Date: 20110219
  Serious: No
  Sender: FDA-Public Use
  Company Number: None

PATIENT
  Age: 66 Year
  Sex: Male
  Weight: 73.94 kg

DRUGS (1)
  1. CETUXIMAB [Suspect]
     Indication: HEAD AND NECK CANCER
     Dosage: 890 MG ONCE IV
     Route: 042
     Dates: start: 20100713, end: 20100713

REACTIONS (2)
  - DYSPNOEA [None]
  - TACHYPNOEA [None]
